FAERS Safety Report 7144732-3 (Version None)
Quarter: 2010Q4

REPORT INFORMATION
  Report Type: 
  Country: None (occurrence: None)
  Receive Date: 20101119
  Receipt Date: 20100104
  Transmission Date: 20110411
  Serious: Yes (Hospitalization)
  Sender: FDA-Public Use
  Company Number: UTC-000785

PATIENT
  Age: 29 Year
  Sex: Female

DRUGS (8)
  1. TYVASO [Suspect]
     Indication: PULMONARY ARTERIAL HYPERTENSION
     Dosage: 144 MCG (36 MCG, 4 IN 1 D), INHALATION
     Route: 055
     Dates: start: 20091210
  2. PREDNISONE [Suspect]
     Dosage: 20 MG (20 MG, TAPERING DOSE), ORAL
     Route: 048
  3. REVATIO [Concomitant]
  4. LAMOTRIGINE [Concomitant]
  5. PRILOSEC (OMEPRAZOLE) [Concomitant]
  6. AZATHIOPRINE [Concomitant]
  7. WARFARIN (WARFARIN) [Concomitant]
  8. FERROUS SULFATE TAB [Concomitant]

REACTIONS (3)
  - FACE OEDEMA [None]
  - LOCAL SWELLING [None]
  - SWELLING FACE [None]
